FAERS Safety Report 6427192-7 (Version None)
Quarter: 2009Q4

REPORT INFORMATION
  Report Type: 
  Country: None (occurrence: None)
  Receive Date: 20091104
  Receipt Date: 20091023
  Transmission Date: 20100525
  Serious: Yes (Death, Other)
  Sender: FDA-Public Use
  Company Number: JP-PFIZER INC-2009288136

PATIENT
  Age: 85 Year
  Sex: Male

DRUGS (4)
  1. ADRIACIN [Suspect]
     Indication: LYMPHOMA
     Dosage: 35 MG/M2,  IJ
  2. ONCOVIN [Suspect]
     Indication: LYMPHOMA
     Dosage: 2 MG, IJ
  3. ENDOXAN [Concomitant]
     Dosage: 525 MG/M2, IJ
  4. PREDNISOLONE [Concomitant]
     Dosage: 100 MG, UNK
     Route: 048

REACTIONS (3)
  - HYPOVOLAEMIC SHOCK [None]
  - ILEUS PARALYTIC [None]
  - MELAENA [None]
